FAERS Safety Report 5749421-5 (Version None)
Quarter: 2008Q2

REPORT INFORMATION
  Report Type: 
  Country: None (occurrence: None)
  Receive Date: 20080521
  Receipt Date: 20080521
  Transmission Date: 20081010
  Serious: Yes (Other)
  Sender: FDA-Public Use
  Company Number: None

PATIENT
  Age: 52 Year
  Sex: Male

DRUGS (2)
  1. ENBREL [Suspect]
     Indication: PSORIASIS
     Dosage: 50MG ONCE WEEKLY SUB Q 057
     Route: 058
     Dates: start: 20070501
  2. ENBREL [Suspect]
     Indication: PSORIASIS
     Dosage: 50MG ONCE WEEKLY SUB Q 057
     Route: 058
     Dates: start: 20080501

REACTIONS (2)
  - ALANINE AMINOTRANSFERASE INCREASED [None]
  - ASPARTATE AMINOTRANSFERASE INCREASED [None]
